FAERS Safety Report 7544137-7 (Version None)
Quarter: 2011Q2

REPORT INFORMATION
  Report Type: 
  Country: None (occurrence: None)
  Receive Date: 20110613
  Receipt Date: 20060327
  Transmission Date: 20111010
  Serious: Yes (Other)
  Sender: FDA-Public Use
  Company Number: PHHO2006CL05075

PATIENT
  Age: 60 Year
  Sex: Female

DRUGS (2)
  1. VALSARTAN [Suspect]
     Dosage: 80 MG, QD
     Route: 048
     Dates: start: 20051212, end: 20060201
  2. PROPRANOLOL [Concomitant]

REACTIONS (2)
  - INFLAMMATION [None]
  - HALLUCINATION [None]
